FAERS Safety Report 4839515-0 (Version None)
Quarter: 2005Q4

REPORT INFORMATION
  Report Type: 
  Country: None (occurrence: None)
  Receive Date: 20051031
  Receipt Date: 20050819
  Transmission Date: 20060501
  Serious: No
  Sender: FDA-Public Use
  Company Number: 200516704US

PATIENT
  Sex: Female

DRUGS (3)
  1. KETEK [Suspect]
  2. KETEK [Suspect]
     Dates: start: 20050801
  3. . [Concomitant]

REACTIONS (3)
  - ABNORMAL FAECES [None]
  - DIARRHOEA [None]
  - PARAESTHESIA [None]
